FAERS Safety Report 18466808 (Version 2)
Quarter: 2020Q4

REPORT INFORMATION
  Report Type: Spontaneous
  Country: TH (occurrence: TH)
  Receive Date: 20201105
  Receipt Date: 20201118
  Transmission Date: 20210114
  Serious: Yes (Other)
  Sender: FDA-Public Use
  Company Number: TH-AUROBINDO-AUR-APL-2020-055671

PATIENT
  Age: 30 Year
  Sex: Male
  Weight: 66 kg

DRUGS (2)
  1. AMOXICILLIN 875MG +CLAVULANIC ACID 125MG TABLETS BP [Suspect]
     Active Substance: AMOXICILLIN\CLAVULANIC ACID
     Indication: ACNE
  2. AMOXICILLIN 875MG +CLAVULANIC ACID 125MG TABLETS BP [Suspect]
     Active Substance: AMOXICILLIN\CLAVULANIC ACID
     Indication: LOWER RESPIRATORY TRACT INFECTION
     Dosage: 1 DOSAGE FORM, TWO TIMES A DAY
     Route: 048

REACTIONS (1)
  - Oesophageal ulcer [Recovered/Resolved]
